FAERS Safety Report 21076973 (Version 1)
Quarter: 2022Q3

REPORT INFORMATION
  Report Type: Spontaneous
  Country: EG (occurrence: EG)
  Receive Date: 20220713
  Receipt Date: 20220713
  Transmission Date: 20221026
  Serious: Yes (Death, Life-Threatening, Hospitalization)
  Sender: FDA-Public Use
  Company Number: EG-MYLANLABS-2022M1077616

PATIENT
  Age: 43 Year
  Sex: Male

DRUGS (13)
  1. NOREPINEPHRINE [Suspect]
     Active Substance: NOREPINEPHRINE
     Indication: Hypotension
     Dosage: UNK, QMINUTE (0.01 MIC/KG/MIN)
     Route: 042
  2. NOREPINEPHRINE [Suspect]
     Active Substance: NOREPINEPHRINE
     Indication: Cardiac arrest
     Dosage: UNK, QMINUTE (3.3 MIC/KG/MIN)
     Route: 042
  3. EPINEPHRINE [Suspect]
     Active Substance: EPINEPHRINE
     Indication: Hypotension
     Dosage: UNK, QMINUTE (2 MIC/KG/MIN)
     Route: 065
  4. EPINEPHRINE [Suspect]
     Active Substance: EPINEPHRINE
     Indication: Cardiac arrest
  5. FLUMAZENIL [Suspect]
     Active Substance: FLUMAZENIL
     Indication: Product used for unknown indication
     Dosage: 0.5 MILLIGRAM (5 AMPOLUES FLUMAZENIL 0.5 MG IV SEQUENTIALLY)
     Route: 042
  6. LEUCOVORIN [Suspect]
     Active Substance: LEUCOVORIN
     Indication: Toxicity to various agents
     Dosage: 50 MILLIGRAM, Q6H
     Route: 042
  7. SODIUM BICARBONATE [Suspect]
     Active Substance: SODIUM BICARBONATE
     Indication: Metabolic acidosis
     Dosage: 150 MILLIEQUIVALENT (SODIUM BICARBONATE 150MEQ OF 8.4 % DILUTED IN 1L OF DEXTROSE 5% AS IV INFUSION
     Route: 042
  8. SODIUM BICARBONATE [Suspect]
     Active Substance: SODIUM BICARBONATE
     Indication: Respiratory acidosis
  9. LIRAGLUTIDE [Concomitant]
     Active Substance: LIRAGLUTIDE
     Indication: Weight decreased
     Dosage: UNK
     Route: 058
  10. SODIUM CHLORIDE [Concomitant]
     Active Substance: SODIUM CHLORIDE
     Indication: Product used for unknown indication
     Dosage: 1000 MILLILITER
     Route: 065
  11. DEXTROSE [Concomitant]
     Active Substance: DEXTROSE
     Indication: Metabolic acidosis
     Dosage: SODIUM BICARBONATE 150MEQ OF 8.4 % DILUTED IN 1L OF DEXTROSE 5% AS IV INFUSION OVER ONE HOUR
     Route: 042
  12. DEXTROSE [Concomitant]
     Active Substance: DEXTROSE
     Indication: Respiratory acidosis
  13. VITAMIN B [Concomitant]
     Active Substance: VITAMIN B
     Indication: Product used for unknown indication
     Dosage: 100 MILLIGRAM
     Route: 042

REACTIONS (1)
  - Drug ineffective [Fatal]
